FAERS Safety Report 23480744 (Version 1)
Quarter: 2024Q1

REPORT INFORMATION
  Report Type: Spontaneous
  Country: JP (occurrence: JP)
  Receive Date: 20240205
  Receipt Date: 20240205
  Transmission Date: 20240410
  Serious: Yes (Death)
  Sender: FDA-Public Use
  Company Number: JP-JNJFOC-20240210146

PATIENT
  Age: 81 Year
  Sex: Male

DRUGS (2)
  1. OPSUMIT [Suspect]
     Active Substance: MACITENTAN
     Indication: Product used for unknown indication
     Route: 048
     Dates: start: 20231130, end: 20231225
  2. UPTRAVI [Concomitant]
     Active Substance: SELEXIPAG
     Dosage: DOSE UNKNOWN
     Route: 048
     Dates: start: 20231130, end: 20231225

REACTIONS (1)
  - Infection [Fatal]

NARRATIVE: CASE EVENT DATE: 20230101
